FAERS Safety Report 23096878 (Version 1)
Quarter: 2023Q4

REPORT INFORMATION
  Report Type: Spontaneous
  Country: GB (occurrence: GB)
  Receive Date: 20231023
  Receipt Date: 20231023
  Transmission Date: 20240110
  Serious: Yes (Other)
  Sender: FDA-Public Use
  Company Number: None

PATIENT
  Age: 64 Year
  Sex: Female
  Weight: 88 kg

DRUGS (6)
  1. SIMVASTATIN [Suspect]
     Active Substance: SIMVASTATIN
     Indication: Product used for unknown indication
     Dosage: 40 MILLIGRAM, QD, (AT NIGHT (SEE IF FEWER CRAMPS THAN ATO)
     Route: 065
     Dates: start: 20230626
  2. CANDESARTAN [Concomitant]
     Active Substance: CANDESARTAN
     Dosage: 1 DOSAGE FORM, QD
     Route: 065
     Dates: start: 20230626
  3. FENBID [Concomitant]
     Dosage: UNK (APPLY UP TO THREE TIMES A DAY)
     Route: 065
     Dates: start: 20230626
  4. LEVOTHYROXINE [Concomitant]
     Active Substance: LEVOTHYROXINE
     Dosage: 1 DOSAGE FORM, QD
     Route: 065
     Dates: start: 20230626
  5. NIFEDIPINE [Concomitant]
     Active Substance: NIFEDIPINE
     Dosage: 1 DOSAGE FORM, BID
     Route: 065
     Dates: start: 20230626
  6. OMEPRAZOLE [Concomitant]
     Active Substance: OMEPRAZOLE
     Dosage: 1 DOSAGE FORM, QD, (WHEN TAKING NAPROXEN)
     Route: 065
     Dates: start: 20230626

REACTIONS (2)
  - Muscle spasms [Not Recovered/Not Resolved]
  - Tendon disorder [Not Recovered/Not Resolved]
